FAERS Safety Report 7127332-0 (Version None)
Quarter: 2010Q4

REPORT INFORMATION
  Report Type: 
  Country: None (occurrence: None)
  Receive Date: 20101129
  Receipt Date: 20100426
  Transmission Date: 20110411
  Serious: No
  Sender: FDA-Public Use
  Company Number: US-PFIZER INC-2010053263

PATIENT
  Sex: Male
  Weight: 70.748 kg

DRUGS (1)
  1. VIAGRA [Suspect]
     Indication: PROSTATECTOMY
     Dosage: 100 MG, AS NEEDED
     Route: 048
     Dates: start: 20080201

REACTIONS (2)
  - FLUSHING [None]
  - NASAL CONGESTION [None]
